FAERS Safety Report 14392724 (Version 4)
Quarter: 2018Q1

REPORT INFORMATION
  Report Type: Spontaneous
  Country: US (occurrence: US)
  Receive Date: 20180116
  Receipt Date: 20180206
  Transmission Date: 20180509
  Serious: Yes (Other)
  Sender: FDA-Public Use
  Company Number: US-AMGEN-USASP2018004140

PATIENT
  Age: 7 Year
  Sex: Female

DRUGS (3)
  1. ENBREL [Suspect]
     Active Substance: ETANERCEPT
     Indication: PSORIASIS
     Dosage: 12.5 MG, QWK
     Route: 065
     Dates: start: 2017
  2. ENBREL [Suspect]
     Active Substance: ETANERCEPT
     Dosage: 12.5 MG, QWK
     Route: 065
     Dates: end: 20180108
  3. ENBREL [Suspect]
     Active Substance: ETANERCEPT
     Dosage: 12.5 MG, QWK
     Route: 065

REACTIONS (8)
  - Optic neuritis [Unknown]
  - Herpes zoster [Unknown]
  - Psoriasis [Unknown]
  - Malaise [Unknown]
  - Injection site urticaria [Unknown]
  - Stress [Unknown]
  - Wrong technique in product usage process [Unknown]
  - Tic [Not Recovered/Not Resolved]

NARRATIVE: CASE EVENT DATE: 2017
